FAERS Safety Report 5268433-1 (Version None)
Quarter: 2007Q1

REPORT INFORMATION
  Report Type: 
  Country: None (occurrence: None)
  Receive Date: 20070319
  Receipt Date: 20070306
  Transmission Date: 20070707
  Serious: Yes (Other)
  Sender: FDA-Public Use
  Company Number: US-GLAXOSMITHKLINE-B0461987A

PATIENT
  Age: 47 Year
  Sex: Female

DRUGS (5)
  1. LAMIVUDINE [Suspect]
     Route: 065
  2. TENOFOVIR DISOPROXIL FUMARATE [Suspect]
     Route: 065
  3. LOPINAVIR + RITONAVIR [Suspect]
     Route: 065
  4. TRIMETHOPRIM + SULFAMETHOXAZOLE [Concomitant]
     Route: 065
  5. AZITHROMYCIN [Concomitant]
     Route: 065

REACTIONS (6)
  - ABDOMINAL PAIN UPPER [None]
  - HEPATIC ENZYME INCREASED [None]
  - HEPATITIS [None]
  - IMMUNE RECONSTITUTION SYNDROME [None]
  - JAUNDICE [None]
  - NAUSEA [None]
